FAERS Safety Report 16397124 (Version 1)
Quarter: 2019Q2

REPORT INFORMATION
  Report Type: Spontaneous
  Country: DE (occurrence: DE)
  Receive Date: 20190606
  Receipt Date: 20190606
  Transmission Date: 20190711
  Serious: Yes (Hospitalization, Other)
  Sender: FDA-Public Use
  Company Number: DE-AMGEN-DEUSP2019085925

PATIENT
  Sex: Male

DRUGS (7)
  1. PEMBROLIZUMAB. [Suspect]
     Active Substance: PEMBROLIZUMAB
     Dosage: 200 MILLIGRAM, CYCLICAL (REPETITION ON DAY 22)
     Route: 065
     Dates: start: 201901, end: 20190213
  2. PEMBROLIZUMAB. [Suspect]
     Active Substance: PEMBROLIZUMAB
     Indication: ADENOCARCINOMA
     Dosage: 200 MILLIGRAM, CYCLICAL (REPETITION ON DAY 22)
     Route: 065
     Dates: start: 201810, end: 201812
  3. PEMETREXED DISODIUM [Suspect]
     Active Substance: PEMETREXED DISODIUM
     Dosage: 500 MILLIGRAM/SQ. METER, CYCLICAL ON DAY 1, CYCLICAL (REPETITION ON DAY 22)
     Route: 065
     Dates: start: 201901
  4. PEMETREXED DISODIUM [Suspect]
     Active Substance: PEMETREXED DISODIUM
     Indication: PRODUCT USED FOR UNKNOWN INDICATION
     Dosage: 500 MILLIGRAM/SQ. METER, CYCLICAL (NEW CYCLE STARTED ON DAY 22)
     Route: 065
     Dates: start: 201810, end: 201812
  5. XGEVA [Suspect]
     Active Substance: DENOSUMAB
     Indication: PRODUCT USED FOR UNKNOWN INDICATION
     Dosage: 120 MILLIGRAM, Q4WK
     Route: 065
     Dates: start: 201810
  6. PEMBROLIZUMAB. [Suspect]
     Active Substance: PEMBROLIZUMAB
     Dosage: 200 MILLIGRAM, CYCLICAL (REPETITION ON DAY 22)
     Route: 065
     Dates: start: 201902, end: 2019
  7. CARBOPLATIN. [Suspect]
     Active Substance: CARBOPLATIN
     Indication: PRODUCT USED FOR UNKNOWN INDICATION
     Dosage: UNK UNK, CYCLICAL
     Route: 065
     Dates: start: 201810

REACTIONS (1)
  - Tubulointerstitial nephritis [Unknown]
